FAERS Safety Report 17680202 (Version 1)
Quarter: 2020Q2

REPORT INFORMATION
  Report Type: Spontaneous
  Country: US (occurrence: US)
  Receive Date: 20200417
  Receipt Date: 20200417
  Transmission Date: 20200714
  Serious: Yes (Hospitalization)
  Sender: FDA-Public Use
  Company Number: None

PATIENT
  Age: 33 Year
  Sex: Male

DRUGS (1)
  1. OXYCODONE (OXYCODONE HCL 10MG TAB) [Suspect]
     Active Substance: OXYCODONE HYDROCHLORIDE
     Dates: start: 20200113

REACTIONS (2)
  - Loss of consciousness [None]
  - Suicide attempt [None]

NARRATIVE: CASE EVENT DATE: 20200115
